FAERS Safety Report 21665305 (Version 1)
Quarter: 2022Q4

REPORT INFORMATION
  Report Type: Report from Study
  Country: US (occurrence: None)
  Receive Date: 20221201
  Receipt Date: 20221201
  Transmission Date: 20230113
  Serious: Yes (Other)
  Sender: FDA-Public Use
  Company Number: 2022A389793

PATIENT
  Sex: Female

DRUGS (6)
  1. FASENRA [Suspect]
     Active Substance: BENRALIZUMAB
     Indication: Asthma
     Dosage: 30MG/ML EVERY EIGHT WEEKS
     Route: 058
  2. OMEPRAZOLE MAGNESIUM [Suspect]
     Active Substance: OMEPRAZOLE MAGNESIUM
     Route: 048
  3. BACLOFEN [Concomitant]
     Active Substance: BACLOFEN
  4. CARVEDILOL [Concomitant]
     Active Substance: CARVEDILOL
  5. HUMALOG SOC [Concomitant]
     Dosage: 1000UNIT/ML
  6. NOVOLOG [Concomitant]
     Active Substance: INSULIN ASPART
     Dosage: 70/3 SUP (70-30)

REACTIONS (4)
  - Cerebrovascular accident [Unknown]
  - Amnesia [Unknown]
  - Dyspnoea [Unknown]
  - Dizziness [Unknown]
